FAERS Safety Report 4715120-1 (Version None)
Quarter: 2005Q3

REPORT INFORMATION
  Report Type: 
  Country: None (occurrence: None)
  Receive Date: 20050715
  Receipt Date: 20050310
  Transmission Date: 20060218
  Serious: Yes (Hospitalization)
  Sender: FDA-Public Use
  Company Number: US-MERCK-0503USA02028

PATIENT
  Age: 46 Year
  Sex: Male
  Weight: 91 kg

DRUGS (2)
  1. VIOXX [Suspect]
     Indication: PAIN
     Route: 048
     Dates: start: 20030318, end: 20030704
  2. PAXIL [Concomitant]
     Route: 065
     Dates: start: 20010901, end: 20040901

REACTIONS (25)
  - ABDOMINAL PAIN [None]
  - ACUTE RESPIRATORY FAILURE [None]
  - ADJUSTMENT DISORDER WITH MIXED DISTURBANCE OF EMOTION AND CONDUCT [None]
  - ANAEMIA [None]
  - ANOXIC ENCEPHALOPATHY [None]
  - CHEST PAIN [None]
  - CHONDROMATOSIS [None]
  - DEPRESSION [None]
  - ESSENTIAL HYPERTENSION [None]
  - GASTROOESOPHAGEAL REFLUX DISEASE [None]
  - HYPOXIA [None]
  - INFECTION [None]
  - MENTAL STATUS CHANGES [None]
  - MYOCARDIAL INFARCTION [None]
  - OEDEMA PERIPHERAL [None]
  - ORTHOSTATIC HYPOTENSION [None]
  - PANCREATITIS ACUTE [None]
  - PNEUMONIA [None]
  - RENAL FAILURE ACUTE [None]
  - RENAL FAILURE CHRONIC [None]
  - RHABDOMYOLYSIS [None]
  - SEBORRHOEIC DERMATITIS [None]
  - SEPTIC SHOCK [None]
  - STAPHYLOCOCCAL INFECTION [None]
  - THROMBOPHLEBITIS SUPERFICIAL [None]
